FAERS Safety Report 24796202 (Version 1)
Quarter: 2025Q1

REPORT INFORMATION
  Report Type: Other
  Country: FR (occurrence: FR)
  Receive Date: 20250101
  Receipt Date: 20250101
  Transmission Date: 20250408
  Serious: Yes (Hospitalization, Congenital Anomaly)
  Sender: ZYDUS PHARM
  Company Number: None

PATIENT

DRUGS (5)
  1. TRAMADOL [Suspect]
     Active Substance: TRAMADOL
     Indication: Dependence
     Route: 065
     Dates: start: 20240219, end: 20241031
  2. VENLAFAXINE [Concomitant]
     Active Substance: VENLAFAXINE HYDROCHLORIDE
     Indication: Depression
     Route: 065
     Dates: start: 20240219, end: 202409
  3. OLANZAPINE [Concomitant]
     Active Substance: OLANZAPINE
     Indication: Depression
     Route: 065
     Dates: start: 20240219, end: 202409
  4. QUETIAPINE [Concomitant]
     Active Substance: QUETIAPINE
     Indication: Depression
     Route: 065
     Dates: start: 202409, end: 20241031
  5. LORAZEPAM [Concomitant]
     Active Substance: LORAZEPAM
     Indication: Mixed anxiety and depressive disorder
     Route: 065
     Dates: start: 20240219, end: 20241031

REACTIONS (5)
  - Neonatal respiratory distress [Recovered/Resolved]
  - Microcephaly [Not Recovered/Not Resolved]
  - Pelvic kidney [Not Recovered/Not Resolved]
  - Small for dates baby [Not Recovered/Not Resolved]
  - Drug withdrawal syndrome neonatal [Recovered/Resolved]

NARRATIVE: CASE EVENT DATE: 20241031
